FAERS Safety Report 8004697-9 (Version None)
Quarter: 2011Q4

REPORT INFORMATION
  Report Type: 
  Country: None (occurrence: None)
  Receive Date: 20111219
  Receipt Date: 20111208
  Transmission Date: 20120403
  Serious: Yes (Other)
  Sender: FDA-Public Use
  Company Number: AUR-APL-2011-00380

PATIENT
  Age: 60 Year

DRUGS (7)
  1. ALLOPURINOL [Suspect]
     Indication: PRODUCT USED FOR UNKNOWN INDICATION
     Dosage: 300 MG (300 MG, 1 IN 1 D)
  2. CETIRIZINE [Suspect]
     Indication: PRODUCT USED FOR UNKNOWN INDICATION
     Dosage: 10 MG (10 MG, 1 IN 1 D)
  3. METFORMIN HCL [Suspect]
     Indication: PRODUCT USED FOR UNKNOWN INDICATION
     Dosage: 1500 MG (1500 MG, 1 IN 1 D)
  4. VALSARTAN [Suspect]
     Indication: PRODUCT USED FOR UNKNOWN INDICATION
     Dosage: 120 MG (120 MG, 1 IN 1 D)
  5. DOXAZOSINE (DOXAZOSIN) [Suspect]
     Indication: PRODUCT USED FOR UNKNOWN INDICATION
     Dosage: 4 MG (4 MG, 1 IN 1 D)
  6. MIRTAZAPINE [Suspect]
     Indication: DEPRESSION
  7. COLCHICINE [Suspect]
     Indication: PRODUCT USED FOR UNKNOWN INDICATION
     Dosage: 1 MG (1 MG, 1 IN 1 D)

REACTIONS (1)
  - PANCREATITIS ACUTE [None]
